FAERS Safety Report 18607313 (Version 1)
Quarter: 2020Q4

REPORT INFORMATION
  Report Type: Report from Study
  Country: US (occurrence: US)
  Receive Date: 20201211
  Receipt Date: 20201211
  Transmission Date: 20210114
  Serious: No
  Sender: FDA-Public Use
  Company Number: NVSC2020US330030

PATIENT
  Sex: Female

DRUGS (1)
  1. KESIMPTA [Suspect]
     Active Substance: OFATUMUMAB
     Indication: MULTIPLE SCLEROSIS
     Dosage: UNK (INJECT 1 PEN SUBCUTANEOUSLY AT WEEK 0, WEEK 1 AND WEEK 2 AS DIRECTED)
     Route: 058

REACTIONS (3)
  - Pain [Unknown]
  - Pyrexia [Unknown]
  - Headache [Unknown]
